FAERS Safety Report 9387002 (Version 2)
Quarter: 2013Q4

REPORT INFORMATION
  Report Type: Spontaneous
  Country: GB (occurrence: None)
  Receive Date: 20130702
  Receipt Date: 20131029
  Transmission Date: 20140711
  Serious: Yes (Other)
  Sender: FDA-Public Use
  Company Number: AUR-APL-2013-05316

PATIENT
  Age: 62 Year
  Sex: Female
  Weight: 50 kg

DRUGS (10)
  1. SIMVASTATIN [Suspect]
     Indication: PRODUCT USED FOR UNKNOWN INDICATION
     Dosage: 80 MG (80 MG, 1 IN 1 D), UNKNOWN
  2. AMLODIPINE [Suspect]
     Indication: PRODUCT USED FOR UNKNOWN INDICATION
  3. CALCIUM (CALCIUM) [Concomitant]
  4. CLONAZEPAM (CLONAZEPAM) (CLONAZEPAM) [Concomitant]
  5. COD LIVER OIL (COD-LIVER OIL) [Concomitant]
  6. ERGOCALCIFEROL (ERGOCALCIFEROL) [Concomitant]
  7. EVENING PRIMROSE (OENOTHERA BIENNIS OIL) [Concomitant]
  8. EZETIMIBE (EZETMIBE) [Concomitant]
  9. REMEDEINE (REMEDEINE) [Concomitant]
  10. VITAMINS NOS (VITAMINS NOS) [Concomitant]

REACTIONS (4)
  - Peroneal nerve palsy [None]
  - Fall [None]
  - Drug interaction [None]
  - Blister [None]
